FAERS Safety Report 9442695 (Version 1)
Quarter: 2013Q3

REPORT INFORMATION
  Report Type: Spontaneous
  Country: DK (occurrence: DK)
  Receive Date: 20130806
  Receipt Date: 20130806
  Transmission Date: 20140515
  Serious: Yes (Hospitalization)
  Sender: FDA-Public Use
  Company Number: PHHY2013DK082405

PATIENT
  Age: 59 Year
  Sex: Female

DRUGS (2)
  1. PREDNISOLONE [Suspect]
     Dosage: 37.5 MG, QD
  2. PREDNISOLONE [Suspect]
     Dosage: 50 MG, UNK

REACTIONS (9)
  - Hyperglycaemic hyperosmolar nonketotic syndrome [Recovering/Resolving]
  - Asthenia [Recovering/Resolving]
  - Abdominal pain upper [Recovering/Resolving]
  - Nausea [Recovering/Resolving]
  - Confusional state [Recovering/Resolving]
  - Gait disturbance [Recovering/Resolving]
  - Cardiac arrest [Recovering/Resolving]
  - Apnoea [Recovering/Resolving]
  - Loss of consciousness [Recovering/Resolving]
